FAERS Safety Report 24398805 (Version 1)
Quarter: 2024Q4

REPORT INFORMATION
  Report Type: Spontaneous
  Country: RU (occurrence: RU)
  Receive Date: 20241004
  Receipt Date: 20241004
  Transmission Date: 20250115
  Serious: Yes (Death)
  Sender: ABBVIE
  Company Number: RU-ABBVIE-5950130

PATIENT
  Age: 49 Year
  Sex: Female

DRUGS (1)
  1. GLECAPREVIR\PIBRENTASVIR [Suspect]
     Active Substance: GLECAPREVIR\PIBRENTASVIR
     Indication: Chronic hepatitis C
     Route: 048

REACTIONS (5)
  - Death [Fatal]
  - General physical health deterioration [Unknown]
  - Malaise [Unknown]
  - Anxiety [Unknown]
  - Asthenia [Unknown]
